FAERS Safety Report 17408341 (Version 4)
Quarter: 2020Q3

REPORT INFORMATION
  Report Type: Spontaneous
  Country: US (occurrence: US)
  Receive Date: 20200212
  Receipt Date: 20200717
  Transmission Date: 20201102
  Serious: Yes (Hospitalization, Other)
  Sender: FDA-Public Use
  Company Number: US-PFIZER INC-2020017104

PATIENT
  Age: 79 Year
  Sex: Female

DRUGS (1)
  1. XELJANZ XR [Suspect]
     Active Substance: TOFACITINIB CITRATE
     Dosage: 11 MG
     Dates: start: 201911

REACTIONS (6)
  - Syncope [Unknown]
  - Pain in extremity [Unknown]
  - Skin cancer [Unknown]
  - Urinary retention [Unknown]
  - Urinary tract infection [Unknown]
  - Skin mass [Unknown]
